FAERS Safety Report 21037166 (Version 2)
Quarter: 2022Q3

REPORT INFORMATION
  Report Type: Spontaneous
  Country: US (occurrence: US)
  Receive Date: 20220703
  Receipt Date: 20220902
  Transmission Date: 20221027
  Serious: No
  Sender: FDA-Public Use
  Company Number: US-ORGANON-O2206USA001800

PATIENT
  Age: 46 Year
  Sex: Female

DRUGS (5)
  1. PROPECIA [Suspect]
     Active Substance: FINASTERIDE
     Indication: Lichen planopilaris
     Dosage: 5 MILLIGRAM, QD
     Route: 048
  2. CLOBETASOL [Concomitant]
     Active Substance: CLOBETASOL
     Dosage: 005 PERCENT, BID
  3. MINOXIDIL [Concomitant]
     Active Substance: MINOXIDIL
     Dosage: 5 PERCENT, FOAM TWICE DAILY
  4. KETOCONAZOLE [Concomitant]
     Active Substance: KETOCONAZOLE
     Dosage: TWICE WEEKLY
  5. DOXYCYCLINE HYCLATE [Concomitant]
     Active Substance: DOXYCYCLINE HYCLATE
     Dosage: 50 MILLIGRAM, BID
     Route: 048

REACTIONS (2)
  - Product use in unapproved indication [Unknown]
  - Product use issue [Unknown]
